FAERS Safety Report 17955907 (Version 4)
Quarter: 2020Q4

REPORT INFORMATION
  Report Type: Spontaneous
  Country: US (occurrence: US)
  Receive Date: 20200629
  Receipt Date: 20201216
  Transmission Date: 20210113
  Serious: Yes (Life-Threatening)
  Sender: FDA-Public Use
  Company Number: US-PFIZER INC-2020245931

PATIENT
  Age: 61 Year
  Sex: Female
  Weight: 59.8 kg

DRUGS (12)
  1. DOBUTAMINE HCL [Interacting]
     Active Substance: DOBUTAMINE HYDROCHLORIDE
     Indication: CARDIOGENIC SHOCK
  2. TERBUTALINE [Suspect]
     Active Substance: TERBUTALINE
     Indication: HAEMODYNAMIC INSTABILITY
     Dosage: 5 MG, EVERY 8 HOURS
     Route: 048
  3. EPINEPHRINE. [Interacting]
     Active Substance: EPINEPHRINE
     Indication: CARDIOGENIC SHOCK
     Dosage: UNK (INFUSION, 0.05 MCG/KG/MIN)
  4. PROPOFOL. [Concomitant]
     Active Substance: PROPOFOL
     Indication: SEDATION
     Dosage: UNK (20-50 MCG/KG/MIN)
  5. FENTANYL. [Concomitant]
     Active Substance: FENTANYL
     Indication: PAIN MANAGEMENT
     Dosage: UNK (DRIP, 20-75 MCG/KG/HR)
     Route: 041
  6. MILRINONE [Concomitant]
     Active Substance: MILRINONE
     Indication: CARDIOGENIC SHOCK
     Dosage: UNK (INFUSION, INCREASED TO 0.4 MCG/KG/MIN)
  7. MILRINONE [Concomitant]
     Active Substance: MILRINONE
     Indication: VASOPLEGIA SYNDROME
  8. DOBUTAMINE HCL [Suspect]
     Active Substance: DOBUTAMINE HYDROCHLORIDE
     Indication: CARDIAC FAILURE
     Dosage: UNK (INFUSION, 6 MCG/KG/ MIN)
  9. MILRINONE [Concomitant]
     Active Substance: MILRINONE
     Indication: CARDIAC FAILURE
     Dosage: UNK (INFUSION, 0.2 MCG/KG/MIN)
  10. DOBUTAMINE HCL [Interacting]
     Active Substance: DOBUTAMINE HYDROCHLORIDE
     Indication: POSITIVE CARDIAC INOTROPIC EFFECT
  11. TERBUTALINE [Suspect]
     Active Substance: TERBUTALINE
     Indication: HEART RATE ABNORMAL
     Dosage: 2.5 MG
     Route: 048
  12. DOBUTAMINE HCL [Interacting]
     Active Substance: DOBUTAMINE HYDROCHLORIDE
     Indication: VASOPLEGIA SYNDROME

REACTIONS (2)
  - Drug interaction [Unknown]
  - Serotonin syndrome [Unknown]
